FAERS Safety Report 8988200 (Version 3)
Quarter: 2013Q2

REPORT INFORMATION
  Report Type: Other
  Country: DK (occurrence: DK)
  Receive Date: 20121227
  Receipt Date: 20130404
  Transmission Date: 20140414
  Serious: Yes (Other)
  Sender: FDA-Public Use
  Company Number: DK-NICOBRDEVP-2012-22539

PATIENT
  Age: 84 Year
  Sex: Female

DRUGS (4)
  1. ALENDRONATE SODIUM- (UNKNOWN) [Suspect]
     Indication: OSTEOPOROSIS
     Dosage: 70 MG, 2 WEEK  (70 MG EVERY 14 DAY)
     Route: 048
     Dates: start: 2006
  2. ZOMETA [Suspect]
     Indication: PLASMA CELL MYELOMA
     Dosage: 4 MG, 1 = 6 WEEKS
     Route: 042
     Dates: start: 20070907
  3. DEXAMETHASON                       /00016001/ [Concomitant]
     Indication: PLASMA CELL MYELOMA
     Dosage: UNK
     Route: 065
  4. ALKERAN                            /00006401/ [Concomitant]
     Indication: PLASMA CELL MYELOMA
     Dosage: UNK
     Route: 065

REACTIONS (4)
  - Osteonecrosis of jaw [Recovered/Resolved]
  - Purulent discharge [Recovered/Resolved]
  - Jaw operation [Recovered/Resolved]
  - Tooth extraction [Unknown]
